FAERS Safety Report 23692616 (Version 1)
Quarter: 2024Q1

REPORT INFORMATION
  Report Type: Spontaneous
  Country: US (occurrence: None)
  Receive Date: 20240330
  Receipt Date: 20240330
  Transmission Date: 20240409
  Serious: No
  Sender: FDA-Public Use
  Company Number: None

PATIENT
  Sex: Male
  Weight: 117.6 kg

DRUGS (1)
  1. LENALIDOMIDE [Suspect]
     Active Substance: LENALIDOMIDE

REACTIONS (11)
  - Pyrexia [None]
  - Chills [None]
  - Headache [None]
  - Nausea [None]
  - Neck pain [None]
  - Rash pustular [None]
  - Sepsis [None]
  - Meningitis [None]
  - Procedural failure [None]
  - Therapy interrupted [None]
  - Migraine [None]

NARRATIVE: CASE EVENT DATE: 20240318
